FAERS Safety Report 22368532 (Version 1)
Quarter: 2023Q2

REPORT INFORMATION
  Report Type: Spontaneous
  Country: US (occurrence: US)
  Receive Date: 20230525
  Receipt Date: 20230525
  Transmission Date: 20230722
  Serious: Yes (Other)
  Sender: FDA-Public Use
  Company Number: US-GILEAD-2023-0629482

PATIENT
  Sex: Female

DRUGS (10)
  1. ZYDELIG [Suspect]
     Active Substance: IDELALISIB
     Indication: Product used for unknown indication
     Dosage: 140 MG, BID
     Route: 048
  2. ZYDELIG [Suspect]
     Active Substance: IDELALISIB
     Dosage: 100 MG, BID
     Route: 048
  3. ACALABRUTINIB [Concomitant]
     Active Substance: ACALABRUTINIB
  4. CALCIUM CARBONATE [Concomitant]
     Active Substance: CALCIUM CARBONATE
  5. CYANOCOBALAMIN [Concomitant]
     Active Substance: CYANOCOBALAMIN
  6. FOLATE SODIUM [Concomitant]
     Active Substance: FOLATE SODIUM
  7. PRIVIGEN [Concomitant]
     Active Substance: HUMAN IMMUNOGLOBULIN G
  8. VITAMINS NOS [Concomitant]
     Active Substance: VITAMINS
  9. DIOVAN [Concomitant]
     Active Substance: VALSARTAN
  10. ROCALTROL [Concomitant]
     Active Substance: CALCITRIOL

REACTIONS (1)
  - Neutropenia [Unknown]
